FAERS Safety Report 20045805 (Version 1)
Quarter: 2021Q4

REPORT INFORMATION
  Report Type: Spontaneous
  Country: US (occurrence: US)
  Receive Date: 20211108
  Receipt Date: 20211108
  Transmission Date: 20220304
  Serious: No
  Sender: FDA-Public Use
  Company Number: US-CELGENE-USA-20211100778

PATIENT
  Sex: Male

DRUGS (2)
  1. POMALYST [Suspect]
     Active Substance: POMALIDOMIDE
     Indication: Plasma cell myeloma
     Dosage: 4 MILLIGRAM
     Route: 048
     Dates: start: 202109
  2. REVLIMID [Suspect]
     Active Substance: LENALIDOMIDE
     Indication: Plasma cell myeloma
     Dosage: 10 MILLIGRAM
     Route: 048
     Dates: start: 201606

REACTIONS (7)
  - Liver disorder [Unknown]
  - Renal disorder [Unknown]
  - Sexual dysfunction [Unknown]
  - Thermal burn [Unknown]
  - Swelling [Unknown]
  - Blood creatinine decreased [Unknown]
  - Rash [Unknown]

NARRATIVE: CASE EVENT DATE: 20210101
